FAERS Safety Report 13133368 (Version 5)
Quarter: 2018Q2

REPORT INFORMATION
  Report Type: Report from Study
  Country: TW (occurrence: TW)
  Receive Date: 20170120
  Receipt Date: 20180625
  Transmission Date: 20180711
  Serious: Yes (Other)
  Sender: FDA-Public Use
  Company Number: PHHY2017TW008016

PATIENT
  Age: 57 Year
  Sex: Female
  Weight: 55.6 kg

DRUGS (19)
  1. SEVIKAR [Concomitant]
     Active Substance: AMLODIPINE BESYLATE\OLMESARTAN MEDOXOMIL
     Indication: HYPERTENSION
     Dosage: 1 DF, UNK
     Route: 048
     Dates: start: 20160129, end: 20160219
  2. FLUOROMETHOLONE. [Concomitant]
     Active Substance: FLUOROMETHOLONE
     Indication: CONJUNCTIVITIS
  3. TASIGNA [Suspect]
     Active Substance: NILOTINIB
     Indication: CHRONIC MYELOID LEUKAEMIA
     Dosage: 600 OT, UNK
     Route: 048
     Dates: start: 20160127, end: 20170820
  4. ARTIFICIAL TEARS [Concomitant]
     Active Substance: GLYCERIN\HYPROMELLOSES\POLYETHYLENE GLYCOL 400
     Indication: VITREOUS DEGENERATION
     Dosage: 1 GTT, UNK
     Route: 061
  5. ARTIFICIAL TEARS [Concomitant]
     Active Substance: GLYCERIN\HYPROMELLOSES\POLYETHYLENE GLYCOL 400
     Indication: CONJUNCTIVITIS
  6. TYROTHRICIN [Concomitant]
     Active Substance: TYROTHRICIN
     Indication: CELLULITIS
     Dosage: 10 G, UNK
     Route: 061
     Dates: start: 20160127, end: 20160129
  7. AMOXICILLIN + CLAVULANIC ACID [Concomitant]
     Active Substance: AMOXICILLIN\CLAVULANIC ACID
     Indication: PNEUMONIA
     Dosage: 1 DF, UNK
     Route: 048
     Dates: start: 20160201, end: 20160202
  8. BISOPROLOL [Concomitant]
     Active Substance: BISOPROLOL
     Indication: HYPERTENSION
     Dosage: 5 MG, UNK
     Route: 048
     Dates: end: 20160210
  9. NEOMYCIN. [Concomitant]
     Active Substance: NEOMYCIN
     Dosage: 1 QS, UNK
     Route: 061
     Dates: end: 20160205
  10. NEOMYCIN. [Concomitant]
     Active Substance: NEOMYCIN
     Indication: CELLULITIS
     Dosage: 10 G, UNK
     Route: 061
     Dates: start: 20160127, end: 20160129
  11. FLUOROMETHOLONE. [Concomitant]
     Active Substance: FLUOROMETHOLONE
     Indication: VITREOUS DEGENERATION
     Dosage: 1 GTT, UNK
     Route: 061
     Dates: end: 20160615
  12. FLUOROMETHOLONE. [Concomitant]
     Active Substance: FLUOROMETHOLONE
     Indication: DRY EYE
  13. SULFAMETHOXAZOLE [Concomitant]
     Active Substance: SULFAMETHOXAZOLE
     Indication: VITREOUS DEGENERATION
     Dosage: 1 GTT, UNK
     Route: 061
  14. SULFAMETHOXAZOLE [Concomitant]
     Active Substance: SULFAMETHOXAZOLE
     Indication: CONJUNCTIVITIS
  15. SUCRALFATE. [Concomitant]
     Active Substance: SUCRALFATE
     Indication: GASTRIC ULCER
     Dosage: 1000 MG, UNK
     Route: 048
     Dates: start: 20160127, end: 20160317
  16. SULFAMETHOXAZOLE [Concomitant]
     Active Substance: SULFAMETHOXAZOLE
     Indication: DRY EYE
  17. ACETAMINOPHEN. [Concomitant]
     Active Substance: ACETAMINOPHEN
     Indication: PNEUMONIA
     Dosage: 500 MG, UNK
     Route: 048
     Dates: end: 20160201
  18. ACETYLCYSTEINE. [Concomitant]
     Active Substance: ACETYLCYSTEINE
     Indication: PNEUMONIA
     Dosage: 600 MG, UNK
     Route: 048
     Dates: start: 20160126, end: 20160210
  19. ARTIFICIAL TEARS [Concomitant]
     Active Substance: GLYCERIN\HYPROMELLOSES\POLYETHYLENE GLYCOL 400
     Indication: DRY EYE

REACTIONS (2)
  - Cellulitis [Recovered/Resolved]
  - Rash [Recovered/Resolved]

NARRATIVE: CASE EVENT DATE: 20160201
